FAERS Safety Report 21394653 (Version 2)
Quarter: 2022Q4

REPORT INFORMATION
  Report Type: Spontaneous
  Country: US (occurrence: US)
  Receive Date: 20220930
  Receipt Date: 20221227
  Transmission Date: 20230112
  Serious: No
  Sender: FDA-Public Use
  Company Number: US-LUNDBECK-DKLU3052164

PATIENT
  Age: 63 Year
  Sex: Female

DRUGS (2)
  1. VYEPTI [Suspect]
     Active Substance: EPTINEZUMAB-JJMR
     Indication: Migraine
     Route: 041
     Dates: start: 20220810
  2. VYEPTI [Suspect]
     Active Substance: EPTINEZUMAB-JJMR
     Route: 041
     Dates: start: 20221110

REACTIONS (3)
  - Drug ineffective [Not Recovered/Not Resolved]
  - Therapeutic response shortened [Unknown]
  - Hypotension [Unknown]

NARRATIVE: CASE EVENT DATE: 20220810
